FAERS Safety Report 5158967-2 (Version None)
Quarter: 2006Q4

REPORT INFORMATION
  Report Type: 
  Country: None (occurrence: None)
  Receive Date: 20061117
  Receipt Date: 20061106
  Transmission Date: 20070319
  Serious: Yes (Hospitalization)
  Sender: FDA-Public Use
  Company Number: 2006136622

PATIENT
  Age: 57 Year
  Sex: Male
  Weight: 100 kg

DRUGS (8)
  1. ALDACTONE [Suspect]
     Dosage: ORAL
     Route: 048
     Dates: start: 20060807, end: 20060905
  2. ENALAPRIL MALEATE [Suspect]
     Dosage: ORAL
     Route: 048
     Dates: start: 20060807, end: 20060905
  3. ACETYLSALICYLATE LYSINE (ACETYLSALICYLATE LYSINE) [Concomitant]
  4. FELODIPINE [Concomitant]
  5. ATAZANAVIR SULFATE (ATAZANAVIR SULFATE) [Concomitant]
  6. RITONAVIR (RITONAVIR) [Concomitant]
  7. DIDANOSINE [Concomitant]
  8. FUROSEMIDE [Concomitant]

REACTIONS (9)
  - ASTHENIA [None]
  - BLOOD POTASSIUM INCREASED [None]
  - BLOOD SODIUM DECREASED [None]
  - CREATININE RENAL CLEARANCE DECREASED [None]
  - DIARRHOEA [None]
  - ELECTROCARDIOGRAM T WAVE PEAKED [None]
  - FALL [None]
  - NAUSEA [None]
  - PAIN IN EXTREMITY [None]
